FAERS Safety Report 15003734 (Version 1)
Quarter: 2018Q2

REPORT INFORMATION
  Report Type: Spontaneous
  Country: DE (occurrence: DE)
  Receive Date: 20180613
  Receipt Date: 20180613
  Transmission Date: 20180711
  Serious: Yes (Hospitalization)
  Sender: FDA-Public Use
  Company Number: DE-TEVA-2018-DE-904277

PATIENT
  Age: 65 Year
  Sex: Female
  Weight: 80 kg

DRUGS (10)
  1. PROPAFENONE. [Suspect]
     Active Substance: PROPAFENONE
     Dosage: 1-0-1-0
     Route: 048
  2. ELIQUIS [Concomitant]
     Active Substance: APIXABAN
     Dosage: 1-0-1-0
     Route: 048
  3. METOPROLOL. [Suspect]
     Active Substance: METOPROLOL
     Dosage: 0-0-0.5-0
     Route: 048
  4. BIFITERAL BEUTEL [Concomitant]
     Active Substance: LACTULOSE
     Dosage: NEED, POUCH
     Route: 048
  5. PANTOZOL [Concomitant]
     Active Substance: PANTOPRAZOLE SODIUM
     Route: 048
  6. CARAMLO 8 MG/5 MG [Suspect]
     Active Substance: AMLODIPINE BESYLATE\CANDESARTAN CILEXETIL
     Dosage: 8|5 MG, 1-0-1-0
     Route: 048
  7. CARAMLO 8 MG/5 MG [Suspect]
     Active Substance: AMLODIPINE BESYLATE\CANDESARTAN CILEXETIL
     Dosage: 8|5 MG, 1-0-1-0
     Route: 048
  8. ALDACTONE [Suspect]
     Active Substance: SPIRONOLACTONE
     Dosage: 1-1-0-0
     Route: 048
  9. CLONISTADA 0,3MG [Suspect]
     Active Substance: CLONIDINE HYDROCHLORIDE
     Dosage: 0.5-1-0-0
     Route: 048
  10. ATORVASTATIN [Concomitant]
     Active Substance: ATORVASTATIN
     Dosage: 0-0-1-0
     Route: 048

REACTIONS (4)
  - Bradycardia [Unknown]
  - Dizziness [Unknown]
  - Hyperkalaemia [Unknown]
  - Bradyarrhythmia [Unknown]
